FAERS Safety Report 15778408 (Version 2)
Quarter: 2019Q1

REPORT INFORMATION
  Report Type: Report from Study
  Country: CA (occurrence: CA)
  Receive Date: 20181231
  Receipt Date: 20190104
  Transmission Date: 20190417
  Serious: Yes (Hospitalization)
  Sender: FDA-Public Use
  Company Number: CA-CELGENEUS-CAN-20181207802

PATIENT
  Age: 69 Year
  Sex: Female
  Weight: 33.4 kg

DRUGS (9)
  1. GEMCITABINE [Suspect]
     Active Substance: GEMCITABINE\GEMCITABINE HYDROCHLORIDE
     Dosage: 836 MILLIGRAM
     Route: 065
     Dates: start: 20181128
  2. ABRAXANE [Suspect]
     Active Substance: PACLITAXEL
     Indication: HEPATOBILIARY CANCER
     Dosage: 170 MILLIGRAM
     Route: 065
     Dates: start: 20180822
  3. GEMCITABINE [Suspect]
     Active Substance: GEMCITABINE\GEMCITABINE HYDROCHLORIDE
     Indication: HEPATOBILIARY CANCER
     Dosage: 1349 MILLIGRAM
     Route: 065
     Dates: start: 20180822
  4. ABRAXANE [Suspect]
     Active Substance: PACLITAXEL
     Dosage: 105 MILLIGRAM
     Route: 065
     Dates: start: 20181128
  5. CISPLATIN. [Suspect]
     Active Substance: CISPLATIN
     Indication: HEPATOBILIARY CANCER
     Dosage: 42 MILLIGRAM
     Route: 065
     Dates: start: 20180822
  6. CISPLATIN. [Suspect]
     Active Substance: CISPLATIN
     Dosage: 42 MILLIGRAM
     Route: 065
     Dates: start: 20181128
  7. APIXABAN [Concomitant]
     Active Substance: APIXABAN
     Indication: ATRIAL FIBRILLATION
     Dosage: 10 MILLIGRAM
     Route: 048
     Dates: start: 20181128
  8. PROPANOLOL [Concomitant]
     Active Substance: PROPRANOLOL HYDROCHLORIDE
     Indication: ATRIAL FIBRILLATION
     Dosage: 5 MILLIGRAM
     Route: 048
     Dates: start: 20181214, end: 20181222
  9. METOPROLOL. [Concomitant]
     Active Substance: METOPROLOL
     Indication: ATRIAL FIBRILLATION
     Dosage: 75 MILLIGRAM
     Route: 048
     Dates: start: 20181222

REACTIONS (1)
  - Pulmonary oedema [Recovered/Resolved]

NARRATIVE: CASE EVENT DATE: 20181220
